FAERS Safety Report 20525769 (Version 1)
Quarter: 2022Q1

REPORT INFORMATION
  Report Type: Spontaneous
  Country: US (occurrence: None)
  Receive Date: 20220226
  Receipt Date: 20220226
  Transmission Date: 20220423
  Serious: Yes (Hospitalization)
  Sender: FDA-Public Use
  Company Number: None

PATIENT
  Sex: Male
  Weight: 106.1 kg

DRUGS (3)
  1. METHOTREXATE [Suspect]
     Active Substance: METHOTREXATE
     Dates: end: 20220218
  2. RITUXIMAB [Suspect]
     Active Substance: RITUXIMAB
     Dates: end: 20220217
  3. LEUCOVORIN CALCIUM [Suspect]
     Active Substance: LEUCOVORIN CALCIUM
     Dates: end: 20220219

REACTIONS (16)
  - COVID-19 [None]
  - Pyrexia [None]
  - Hypotension [None]
  - Blood lactic acid increased [None]
  - Pulmonary embolism [None]
  - Pneumonia [None]
  - Haemoglobin decreased [None]
  - Haematocrit decreased [None]
  - Red blood cell count decreased [None]
  - Blood calcium decreased [None]
  - Haptoglobin decreased [None]
  - Blood lactate dehydrogenase increased [None]
  - Glomerular filtration rate decreased [None]
  - Protein total decreased [None]
  - Blood albumin decreased [None]
  - Deep vein thrombosis [None]

NARRATIVE: CASE EVENT DATE: 20220220
